FAERS Safety Report 18233957 (Version 1)
Quarter: 2020Q3

REPORT INFORMATION
  Report Type: Spontaneous
  Country: US (occurrence: US)
  Receive Date: 20200904
  Receipt Date: 20200904
  Transmission Date: 20201103
  Serious: Yes (Other)
  Sender: FDA-Public Use
  Company Number: US-AMGEN-USASP2020141848

PATIENT
  Age: 51 Year
  Sex: Male

DRUGS (11)
  1. FILGRASTIM [Suspect]
     Active Substance: FILGRASTIM
     Indication: PRODUCT USED FOR UNKNOWN INDICATION
     Dosage: 5 MICROGRAM/KILOGRAM, QD
     Route: 058
  2. TRIMETHOPRIM SULFAMETHOXAZOLE [Concomitant]
     Active Substance: SULFAMETHOXAZOLE\TRIMETHOPRIM
     Dosage: UNK UNK, Q2WK
     Route: 048
  3. VANCOMYCIN [Concomitant]
     Active Substance: VANCOMYCIN
     Indication: INFECTION PROPHYLAXIS
     Dosage: 1 GRAM, QD
     Route: 048
  4. CYCLOPHOSPHAMIDE. [Concomitant]
     Active Substance: CYCLOPHOSPHAMIDE
     Indication: CHRONIC MYELOID LEUKAEMIA
  5. PENTAMIDINE [Concomitant]
     Active Substance: PENTAMIDINE
     Dosage: UNK UNK, Q3WK
  6. CYCLOSPORINE. [Concomitant]
     Active Substance: CYCLOSPORINE
     Indication: PROPHYLAXIS AGAINST GRAFT VERSUS HOST DISEASE
     Dosage: 3 MILLIGRAM/KILOGRAM, QD ON DAY ?2
     Route: 042
  7. METHYLPREDNISOLONE. [Concomitant]
     Active Substance: METHYLPREDNISOLONE
     Dosage: UNK
     Route: 042
  8. FLUCONAZOLE. [Concomitant]
     Active Substance: FLUCONAZOLE
     Indication: INFECTION PROPHYLAXIS
     Dosage: 200 MILLIGRAM, BID
     Route: 042
  9. METHYLPREDNISOLONE. [Concomitant]
     Active Substance: METHYLPREDNISOLONE
     Indication: PROPHYLAXIS AGAINST GRAFT VERSUS HOST DISEASE
     Dosage: 0.5 MILLIGRAM/KILOGRAM, BID ON DAYS 5 TO 28
     Route: 042
  10. ACYCLOVIR [ACICLOVIR] [Concomitant]
     Active Substance: ACYCLOVIR
     Indication: INFECTION PROPHYLAXIS
     Dosage: 5 MILLIGRAM/KILOGRAM EVERY 8 OR 12 HOURS
     Route: 042
  11. CYCLOSPORINE. [Concomitant]
     Active Substance: CYCLOSPORINE
     Dosage: UNK
     Route: 042

REACTIONS (1)
  - Graft versus host disease [Recovered/Resolved]
